FAERS Safety Report 23529554 (Version 1)
Quarter: 2024Q1

REPORT INFORMATION
  Report Type: Report from Study
  Country: US (occurrence: None)
  Receive Date: 20240216
  Receipt Date: 20240216
  Transmission Date: 20240410
  Serious: Yes (Other)
  Sender: FDA-Public Use
  Company Number: 2024A033698

PATIENT
  Sex: Male
  Weight: 79.4 kg

DRUGS (7)
  1. CALQUENCE [Suspect]
     Active Substance: ACALABRUTINIB
     Indication: Chronic lymphocytic leukaemia
     Route: 048
     Dates: start: 20220201
  2. VITAMINS [Concomitant]
     Active Substance: VITAMINS
  3. FOLIC ACID [Concomitant]
     Active Substance: FOLIC ACID
  4. ACYCLOVIR [Concomitant]
     Active Substance: ACYCLOVIR
  5. OMEGA-3 ACIDS [Concomitant]
     Active Substance: OMEGA-3 FATTY ACIDS
  6. CINNAMON [Concomitant]
     Active Substance: CINNAMON
  7. KETOCONAZOLE [Concomitant]
     Active Substance: KETOCONAZOLE

REACTIONS (1)
  - Precancerous condition [Not Recovered/Not Resolved]
